FAERS Safety Report 9719257 (Version 1)
Quarter: 2013Q4

REPORT INFORMATION
  Report Type: Report from Study
  Country: FR (occurrence: FR)
  Receive Date: 20131127
  Receipt Date: 20131127
  Transmission Date: 20140711
  Serious: Yes (Other)
  Sender: FDA-Public Use
  Company Number: PHHO2013FR015343

PATIENT
  Sex: 0

DRUGS (3)
  1. AMN107 [Suspect]
     Indication: CHRONIC MYELOID LEUKAEMIA
     Dosage: 300 MG, BID
     Route: 048
     Dates: start: 20071030, end: 20131121
  2. XYZALL [Concomitant]
     Indication: PRURITUS
     Dosage: UNK
     Dates: start: 20080117, end: 20131121
  3. TENSTATEN [Concomitant]
     Indication: HYPERTENSION
     Dosage: UNK
     Dates: start: 20110101, end: 20131113

REACTIONS (1)
  - Angina pectoris [Recovered/Resolved with Sequelae]
